FAERS Safety Report 4370664-X (Version None)
Quarter: 2004Q2

REPORT INFORMATION
  Report Type: 
  Country: None (occurrence: None)
  Receive Date: 20040526
  Receipt Date: 20040511
  Transmission Date: 20050107
  Serious: Yes (Death)
  Sender: FDA-Public Use
  Company Number: 2004-BP-03351CL

PATIENT
  Age: 89 Year
  Sex: Male

DRUGS (2)
  1. COMBIVENT [Suspect]
     Indication: ASTHMA
     Dosage: 360/63MCG (SEE TEXT, 6 PUFFS DAILY (STRENGTH : 120/21MCG)  IH
     Route: 055
     Dates: start: 20030825
  2. TRENTAL [Concomitant]

REACTIONS (1)
  - DEATH [None]
